FAERS Safety Report 23968588 (Version 5)
Quarter: 2024Q3

REPORT INFORMATION
  Report Type: Spontaneous
  Country: US (occurrence: US)
  Receive Date: 20240612
  Receipt Date: 20240830
  Transmission Date: 20241016
  Serious: No
  Sender: NOVARTIS
  Company Number: US-002147023-NVSC2024US123264

PATIENT
  Age: 61 Year
  Sex: Female

DRUGS (2)
  1. COSENTYX [Suspect]
     Active Substance: SECUKINUMAB
     Indication: Hidradenitis
     Dosage: 300 MG (300/2 MG) (ONCE A WEEK FOR 4 WEEKS THEN ONCE A MONTH)
     Route: 058
  2. COSENTYX [Suspect]
     Active Substance: SECUKINUMAB
     Indication: Product dose omission issue
     Dosage: 300 MG, QMO
     Route: 054
     Dates: start: 20240503, end: 20240703

REACTIONS (4)
  - Condition aggravated [Not Recovered/Not Resolved]
  - Hidradenitis [Not Recovered/Not Resolved]
  - Product dose omission issue [Unknown]
  - Incorrect route of product administration [Unknown]

NARRATIVE: CASE EVENT DATE: 20240503
